FAERS Safety Report 18738955 (Version 2)
Quarter: 2021Q1

REPORT INFORMATION
  Report Type: Report from Study
  Country: CA (occurrence: CA)
  Receive Date: 20210114
  Receipt Date: 20210119
  Transmission Date: 20210419
  Serious: Yes (Hospitalization, Other)
  Sender: FDA-Public Use
  Company Number: CA-JNJFOC-20210113970

PATIENT
  Age: 15 Year
  Sex: Male
  Weight: 68 kg

DRUGS (1)
  1. REMICADE [Suspect]
     Active Substance: INFLIXIMAB
     Indication: COLITIS ULCERATIVE
     Dosage: LAST DOSE RECEIVED 07/JAN/2021
     Route: 042
     Dates: start: 20200523

REACTIONS (10)
  - Anaemia [Unknown]
  - Haematochezia [Unknown]
  - Stress [Unknown]
  - Diarrhoea [Unknown]
  - Pancreatitis [Unknown]
  - Frequent bowel movements [Unknown]
  - Pallor [Unknown]
  - General physical health deterioration [Unknown]
  - Treatment failure [Unknown]
  - Abdominal pain [Unknown]

NARRATIVE: CASE EVENT DATE: 20201215
